FAERS Safety Report 8081621-4 (Version None)
Quarter: 2012Q1

REPORT INFORMATION
  Report Type: 
  Country: None (occurrence: None)
  Receive Date: 20120130
  Receipt Date: 20120123
  Transmission Date: 20120608
  Serious: Yes (Hospitalization)
  Sender: FDA-Public Use
  Company Number: JP-PFIZER INC-2011295497

PATIENT
  Age: 63 Year
  Sex: Female
  Weight: 55 kg

DRUGS (9)
  1. MEDROL [Suspect]
     Indication: RHEUMATOID ARTHRITIS
     Dosage: 2 MG, 2X/WEEK
     Route: 048
     Dates: start: 20020801
  2. LIMETHASONE [Concomitant]
     Indication: RHEUMATOID ARTHRITIS
     Dosage: UNK
  3. LIPITOR [Concomitant]
     Indication: HYPERLIPIDAEMIA
     Dosage: 5 MG, 1X/DAY
     Route: 048
     Dates: start: 20100601
  4. ALLOPURINOL [Concomitant]
     Indication: HYPERURICAEMIA
     Dosage: 100 MG, 2X/DAY
     Route: 048
     Dates: start: 20110301
  5. HYALURONATE SODIUM [Concomitant]
     Dosage: UNK
     Dates: start: 20020801
  6. ELCITONIN [Concomitant]
     Indication: OSTEOPOROSIS
     Dosage: UNK
     Dates: start: 20080601
  7. BEZATOL - SLOW RELEASE [Concomitant]
     Indication: HYPERLIPIDAEMIA
     Dosage: 100 MG, 1X/DAY
     Route: 048
     Dates: start: 20100601
  8. ACTARIT [Concomitant]
     Indication: RHEUMATOID ARTHRITIS
     Dosage: 100 MG, 3X/DAY
     Route: 048
     Dates: start: 20070501
  9. RISEDRONATE SODIUM [Concomitant]
     Indication: OSTEOPOROSIS
     Dosage: 17.5 MG, WEEKLY
     Route: 048

REACTIONS (1)
  - ANAPHYLACTIC SHOCK [None]
